FAERS Safety Report 9501019 (Version 3)
Quarter: 2013Q4

REPORT INFORMATION
  Report Type: Spontaneous
  Country: US (occurrence: None)
  Receive Date: 20130107
  Receipt Date: 20131226
  Transmission Date: 20140711
  Serious: Yes (Other)
  Sender: FDA-Public Use
  Company Number: PHEH2012US019520

PATIENT
  Age: 63 Year
  Sex: Female

DRUGS (1)
  1. GILENYA [Suspect]
     Indication: MULTIPLE SCLEROSIS
     Route: 048
     Dates: start: 20120919

REACTIONS (6)
  - Joint injury [None]
  - Multiple sclerosis relapse [None]
  - Drug ineffective [None]
  - Gait disturbance [None]
  - Limb discomfort [None]
  - Asthenia [None]
